FAERS Safety Report 17071446 (Version 1)
Quarter: 2019Q4

REPORT INFORMATION
  Report Type: Spontaneous
  Country: US (occurrence: US)
  Receive Date: 20191125
  Receipt Date: 20191125
  Transmission Date: 20200122
  Serious: No
  Sender: FDA-Public Use
  Company Number: US-ROCHE-2303735

PATIENT
  Sex: Female
  Weight: 86.26 kg

DRUGS (1)
  1. TAMIFLU [Suspect]
     Active Substance: OSELTAMIVIR PHOSPHATE
     Indication: INFLUENZA
     Dosage: 3 ;ONGOING: NO
     Route: 065
     Dates: start: 20190407, end: 20190409

REACTIONS (2)
  - Drug ineffective [Unknown]
  - No adverse event [Unknown]
